FAERS Safety Report 14612435 (Version 1)
Quarter: 2018Q1

REPORT INFORMATION
  Report Type: Spontaneous
  Country: US (occurrence: US)
  Receive Date: 20180308
  Receipt Date: 20180308
  Transmission Date: 20180509
  Serious: No
  Sender: FDA-Public Use
  Company Number: US-ELI_LILLY_AND_COMPANY-US201802008158

PATIENT
  Sex: Male

DRUGS (2)
  1. LANTUS [Concomitant]
     Active Substance: INSULIN GLARGINE
     Indication: DIABETES MELLITUS
  2. HUMULIN R [Suspect]
     Active Substance: INSULIN HUMAN
     Indication: DIABETES MELLITUS
     Dosage: UNK, UNKNOWN

REACTIONS (2)
  - Wrong technique in product usage process [Unknown]
  - Blood glucose abnormal [Recovering/Resolving]

NARRATIVE: CASE EVENT DATE: 2017
